FAERS Safety Report 14388531 (Version 1)
Quarter: 2018Q1

REPORT INFORMATION
  Report Type: Report from Study
  Country: US (occurrence: US)
  Receive Date: 20180115
  Receipt Date: 20180115
  Transmission Date: 20180509
  Serious: Yes (Hospitalization, Other)
  Sender: FDA-Public Use
  Company Number: PHHY2017US168127

PATIENT
  Age: 27 Year
  Sex: Male
  Weight: 82 kg

DRUGS (35)
  1. TOBI PODHALER [Suspect]
     Active Substance: TOBRAMYCIN
     Indication: PSEUDOMONAS INFECTION
     Dosage: 112 MG, BID (OTHER MONTH)
     Route: 055
     Dates: start: 20171027, end: 20171027
  2. XARELTO [Concomitant]
     Active Substance: RIVAROXABAN
     Indication: ANTICOAGULANT THERAPY
  3. VITAMIN D3 [Concomitant]
     Active Substance: CHOLECALCIFEROL
     Indication: VITAMIN D DEFICIENCY
     Dosage: 1 DF, QD
     Route: 065
     Dates: start: 20170627
  4. DOXYCYCLIN [Concomitant]
     Active Substance: DOXYCYCLINE
     Indication: UPPER RESPIRATORY TRACT INFECTION
     Dosage: 100 MG, BID
     Route: 048
     Dates: start: 20170421, end: 20170501
  5. SODIUM CHLORIDE. [Concomitant]
     Active Substance: SODIUM CHLORIDE
     Indication: ELECTROLYTE SUBSTITUTION THERAPY
  6. MELATONIN [Concomitant]
     Active Substance: MELATONIN
     Indication: SUPPLEMENTATION THERAPY
  7. FLUTICASONE. [Concomitant]
     Active Substance: FLUTICASONE
     Indication: RHINITIS ALLERGIC
     Dosage: 50 UG, QD
     Route: 065
     Dates: start: 20150409
  8. PULMOZYME [Concomitant]
     Active Substance: DORNASE ALFA
     Indication: CYSTIC FIBROSIS LUNG
     Dosage: 1 DF, QD
     Route: 065
     Dates: start: 19970108
  9. FEXOFENADINE [Concomitant]
     Active Substance: FEXOFENADINE\FEXOFENADINE HYDROCHLORIDE
     Indication: SEASONAL ALLERGY
     Dosage: 180 MG, QD
     Route: 065
     Dates: start: 20140217
  10. XARELTO [Concomitant]
     Active Substance: RIVAROXABAN
     Indication: THROMBOSIS PROPHYLAXIS
     Dosage: 1 DF, QD
     Route: 065
     Dates: start: 20170214, end: 20170302
  11. MELATONIN [Concomitant]
     Active Substance: MELATONIN
     Indication: INSOMNIA
     Dosage: 3 MG, QHS
     Route: 048
     Dates: start: 20171027, end: 20171031
  12. HYDROCODONE [Concomitant]
     Active Substance: HYDROCODONE
     Indication: WRIST FRACTURE
     Dosage: 1 DF, Q4H
     Route: 065
     Dates: start: 20170503, end: 20170509
  13. ONDANSETRON [Concomitant]
     Active Substance: ONDANSETRON
     Indication: NAUSEA
     Dosage: 4 MG, Q4H
     Route: 042
     Dates: start: 20171027, end: 20171031
  14. LOVENOX [Concomitant]
     Active Substance: ENOXAPARIN SODIUM
     Indication: ANTICOAGULANT THERAPY
  15. TORADOL [Concomitant]
     Active Substance: KETOROLAC TROMETHAMINE
     Indication: ANALGESIC THERAPY
  16. SODIUM CHLORIDE. [Concomitant]
     Active Substance: SODIUM CHLORIDE
     Indication: INFECTIVE PULMONARY EXACERBATION OF CYSTIC FIBROSIS
     Dosage: 100 ML, PER HOUR
     Route: 042
     Dates: start: 20171027, end: 20171028
  17. LINEZOLID. [Concomitant]
     Active Substance: LINEZOLID
     Indication: INFECTIVE PULMONARY EXACERBATION OF CYSTIC FIBROSIS
     Dosage: 1200 MG, BID
     Route: 048
     Dates: start: 20171030, end: 20171031
  18. LINEZOLID. [Concomitant]
     Active Substance: LINEZOLID
     Indication: PSEUDOMONAS INFECTION
  19. CEFEPIME [Concomitant]
     Active Substance: CEFEPIME HYDROCHLORIDE
     Indication: INFECTIVE PULMONARY EXACERBATION OF CYSTIC FIBROSIS
     Dosage: 2000 MG, TID
     Route: 042
     Dates: start: 20171027, end: 20171027
  20. VANCOMYCIN [Concomitant]
     Active Substance: VANCOMYCIN
     Indication: INFECTIVE PULMONARY EXACERBATION OF CYSTIC FIBROSIS
     Dosage: 1250 MG, TID
     Route: 065
     Dates: start: 20171028, end: 20171028
  21. VANCOMYCIN [Concomitant]
     Active Substance: VANCOMYCIN
     Dosage: 1750 MG, TID
     Route: 042
     Dates: start: 20171029, end: 20171030
  22. MEROPENEM. [Concomitant]
     Active Substance: MEROPENEM
     Indication: INFECTIVE PULMONARY EXACERBATION OF CYSTIC FIBROSIS
     Dosage: 1 DF, Q8H
     Route: 042
     Dates: start: 20170217, end: 20170221
  23. TORADOL [Concomitant]
     Active Substance: KETOROLAC TROMETHAMINE
     Indication: PLEURITIC PAIN
     Dosage: 40 MG, QD
     Route: 042
     Dates: start: 20171027, end: 20171027
  24. LOVENOX [Concomitant]
     Active Substance: ENOXAPARIN SODIUM
     Indication: THROMBOSIS PROPHYLAXIS
     Dosage: 40 MG, QD
     Route: 058
     Dates: start: 20171028, end: 20171031
  25. AVELOX [Concomitant]
     Active Substance: MOXIFLOXACIN HYDROCHLORIDE
     Indication: INFECTIVE PULMONARY EXACERBATION OF CYSTIC FIBROSIS
     Dosage: 1 DF, QD
     Route: 065
     Dates: start: 20160814, end: 20160826
  26. TOBI PODHALER [Suspect]
     Active Substance: TOBRAMYCIN
     Indication: CYSTIC FIBROSIS
     Dosage: 112 MG, BID
     Route: 055
     Dates: start: 20130725
  27. HYDROCODONE [Concomitant]
     Active Substance: HYDROCODONE
     Indication: ARTHRALGIA
  28. CEFEPIME [Concomitant]
     Active Substance: CEFEPIME HYDROCHLORIDE
     Indication: ANTI-INFECTIVE THERAPY
     Dosage: 2000 MG, QID
     Route: 042
     Dates: start: 20171029, end: 20171031
  29. MEROPENEM. [Concomitant]
     Active Substance: MEROPENEM
     Dosage: 1 DF, Q8H
     Route: 042
     Dates: start: 20170728, end: 20170810
  30. ORKAMBI [Concomitant]
     Active Substance: IVACAFTOR\LUMACAFTOR
     Indication: CYSTIC FIBROSIS LUNG
     Dosage: 2 DF, BID
     Route: 065
     Dates: start: 20150811
  31. CREON [Concomitant]
     Active Substance: PANCRELIPASE AMYLASE\PANCRELIPASE LIPASE\PANCRELIPASE PROTEASE
     Indication: PANCREATIC FAILURE
     Dosage: 7 DF, QD (BEFORE MEALS)
     Route: 065
     Dates: start: 20090929
  32. XARELTO [Concomitant]
     Active Substance: RIVAROXABAN
     Indication: FACTOR X INHIBITION
     Dosage: 1 DF, QD
     Route: 065
     Dates: start: 20170727, end: 20170804
  33. INFLUENZA VACCINE [Concomitant]
     Active Substance: INFLUENZA VIRUS VACCINE
     Indication: ANTIVIRAL PROPHYLAXIS
     Dosage: 0.5 ML, QD
     Route: 030
     Dates: start: 20171031, end: 20171031
  34. CEFEPIME [Concomitant]
     Active Substance: CEFEPIME HYDROCHLORIDE
     Dosage: 2000 MG, TID
     Route: 042
     Dates: start: 20171031, end: 20171110
  35. VANCOMYCIN [Concomitant]
     Active Substance: VANCOMYCIN
     Dosage: 2000 MG, TID
     Route: 065
     Dates: start: 20171028, end: 20171028

REACTIONS (9)
  - Infective pulmonary exacerbation of cystic fibrosis [Recovering/Resolving]
  - Dyspnoea [Recovering/Resolving]
  - Pyrexia [Recovering/Resolving]
  - Tachycardia [Unknown]
  - Productive cough [Recovering/Resolving]
  - White blood cell count increased [Unknown]
  - Bronchiectasis [Unknown]
  - Chest pain [Recovering/Resolving]
  - Pancreatic atrophy [Unknown]

NARRATIVE: CASE EVENT DATE: 20171027
